FAERS Safety Report 5966760-3 (Version None)
Quarter: 2008Q4

REPORT INFORMATION
  Report Type: 
  Country: None (occurrence: None)
  Receive Date: 20081125
  Receipt Date: 20081111
  Transmission Date: 20090506
  Serious: No
  Sender: FDA-Public Use
  Company Number: GB-WYE-G02551508

PATIENT
  Age: 43 Year
  Sex: Male

DRUGS (1)
  1. BENEFIX [Suspect]
     Indication: FACTOR IX DEFICIENCY
     Dosage: UNKNOWN

REACTIONS (4)
  - CONTUSION [None]
  - DRUG INEFFECTIVE [None]
  - FALL [None]
  - NAUSEA [None]
